FAERS Safety Report 18970101 (Version 1)
Quarter: 2021Q1

REPORT INFORMATION
  Report Type: Spontaneous
  Country: AU (occurrence: AU)
  Receive Date: 20210304
  Receipt Date: 20210304
  Transmission Date: 20210420
  Serious: Yes (Other)
  Sender: FDA-Public Use
  Company Number: AU-PFIZER INC-2021194986

PATIENT
  Sex: Female

DRUGS (2)
  1. RALOVERA [Suspect]
     Active Substance: MEDROXYPROGESTERONE ACETATE
     Dosage: UNK (HALF THE DOSE)
     Dates: start: 1994
  2. SANDRENA [Concomitant]
     Active Substance: ESTRADIOL
     Dosage: UNK

REACTIONS (5)
  - Syncope [Unknown]
  - Vomiting [Unknown]
  - Headache [Unknown]
  - Intentional product use issue [Unknown]
  - Arthritis [Unknown]
